FAERS Safety Report 15993146 (Version 1)
Quarter: 2019Q1

REPORT INFORMATION
  Report Type: Spontaneous
  Country: FR (occurrence: FR)
  Receive Date: 20190221
  Receipt Date: 20190221
  Transmission Date: 20190418
  Serious: Yes (Other)
  Sender: FDA-Public Use
  Company Number: FR-PROVELL PHARMACEUTICALS-2063049

PATIENT
  Age: 45 Year
  Sex: Female
  Weight: 73 kg

DRUGS (1)
  1. EUTHYROX [Suspect]
     Active Substance: LEVOTHYROXINE SODIUM
     Indication: HYPOTHYROIDISM
     Route: 048
     Dates: start: 201812, end: 20190111

REACTIONS (5)
  - Pruritus [Recovered/Resolved]
  - Rash [Recovered/Resolved]
  - Weight increased [Recovered/Resolved]
  - Thermal burn [Recovered/Resolved]
  - Asthenia [Recovered/Resolved]

NARRATIVE: CASE EVENT DATE: 201812
